FAERS Safety Report 4314240-3 (Version None)
Quarter: 2004Q1

REPORT INFORMATION
  Report Type: 
  Country: None (occurrence: None)
  Receive Date: 20040309
  Receipt Date: 20040309
  Transmission Date: 20041129
  Serious: No
  Sender: FDA-Public Use
  Company Number: None

PATIENT
  Age: 35 Year
  Sex: Male
  Weight: 104.3273 kg

DRUGS (2)
  1. ZOLOFT [Suspect]
     Indication: PANIC ATTACK
     Dosage: 2 PILLS DAILY ORAL
     Route: 048
     Dates: start: 19970101, end: 20040308
  2. ZOLOFT [Suspect]
     Indication: PANIC DISORDER
     Dosage: 2 PILLS DAILY ORAL
     Route: 048
     Dates: start: 19970101, end: 20040308

REACTIONS (7)
  - ANXIETY [None]
  - CHEST PAIN [None]
  - FEELING ABNORMAL [None]
  - INSOMNIA [None]
  - PARAESTHESIA [None]
  - SUICIDAL IDEATION [None]
  - TOOTH DISORDER [None]
